FAERS Safety Report 5475064-7 (Version None)
Quarter: 2007Q4

REPORT INFORMATION
  Report Type: 
  Country: None (occurrence: None)
  Receive Date: 20071002
  Receipt Date: 20070920
  Transmission Date: 20080405
  Serious: Yes (Disabling)
  Sender: FDA-Public Use
  Company Number: GB-PFIZER INC-2007078862

PATIENT
  Age: 59 Year
  Sex: Female
  Weight: 73 kg

DRUGS (10)
  1. CHANTIX [Suspect]
     Indication: SMOKING CESSATION THERAPY
     Route: 048
     Dates: start: 20070618, end: 20070624
  2. CO-CODAMOL [Concomitant]
     Indication: PAIN
     Route: 048
  3. CO-FLUMACTONE [Concomitant]
     Indication: OEDEMA
     Route: 048
  4. TOLTERODINE [Concomitant]
     Route: 048
  5. FLUOXETINE [Concomitant]
     Indication: DEPRESSION
     Route: 048
  6. GABAPENTIN [Concomitant]
     Indication: PAIN
     Route: 048
  7. LANSOPRAZOLE [Concomitant]
     Indication: DYSPEPSIA
     Route: 048
  8. PREDNISOLONE [Concomitant]
     Indication: ARTHRITIS
     Route: 048
  9. PREMARIN [Concomitant]
     Indication: MENOPAUSE
     Route: 048
  10. RANITIDINE HYDROCHLORIDE [Concomitant]
     Indication: DYSPEPSIA
     Route: 048

REACTIONS (3)
  - MOOD SWINGS [None]
  - PARANOIA [None]
  - SOMNOLENCE [None]
